FAERS Safety Report 14987119 (Version 3)
Quarter: 2018Q4

REPORT INFORMATION
  Report Type: Report from Study
  Country: GB (occurrence: GB)
  Receive Date: 20180608
  Receipt Date: 20181213
  Transmission Date: 20190204
  Serious: Yes (Hospitalization)
  Sender: FDA-Public Use
  Company Number: GB-BIOGEN-2018BI00592186

PATIENT
  Age: 4 Year

DRUGS (4)
  1. NUSINERSEN [Suspect]
     Active Substance: NUSINERSEN
     Indication: SPINAL MUSCULAR ATROPHY
     Route: 065
     Dates: start: 20170411
  2. ERGOCALCIFEROL. [Concomitant]
     Active Substance: ERGOCALCIFEROL
     Indication: PRODUCT USED FOR UNKNOWN INDICATION
     Dosage: 1.4 ML WEEKLY
     Route: 065
     Dates: start: 20161118
  3. NUSINERSEN [Suspect]
     Active Substance: NUSINERSEN
     Route: 065
     Dates: start: 20180522
  4. OMEPRAZOLE. [Concomitant]
     Active Substance: OMEPRAZOLE
     Indication: PRODUCT USED FOR UNKNOWN INDICATION
     Route: 065
     Dates: start: 20160418

REACTIONS (7)
  - Factor VIII deficiency [Recovered/Resolved with Sequelae]
  - Cerebral infarction [Recovered/Resolved with Sequelae]
  - Meningitis [Recovered/Resolved with Sequelae]
  - Angiopathy [Unknown]
  - Seizure [Recovered/Resolved with Sequelae]
  - Subarachnoid haemorrhage [Recovered/Resolved with Sequelae]
  - Inappropriate antidiuretic hormone secretion [Recovered/Resolved]

NARRATIVE: CASE EVENT DATE: 20180523
